FAERS Safety Report 17010170 (Version 2)
Quarter: 2019Q4

REPORT INFORMATION
  Report Type: Spontaneous
  Country: US (occurrence: US)
  Receive Date: 20191108
  Receipt Date: 20191119
  Transmission Date: 20200122
  Serious: Yes (Disabling, Other)
  Sender: FDA-Public Use
  Company Number: US-JNJFOC-20191102031

PATIENT
  Sex: Female

DRUGS (2)
  1. IMBRUVICA [Suspect]
     Active Substance: IBRUTINIB
     Indication: CHRONIC LYMPHOCYTIC LEUKAEMIA
     Dosage: 420 MG, QD
     Route: 048
     Dates: start: 20161018, end: 201902
  2. IMBRUVICA [Suspect]
     Active Substance: IBRUTINIB
     Indication: CHRONIC LYMPHOCYTIC LEUKAEMIA
     Route: 048
     Dates: end: 201902

REACTIONS (8)
  - Weight increased [Recovering/Resolving]
  - Pain in extremity [Unknown]
  - Fall [Recovering/Resolving]
  - Gait disturbance [Not Recovered/Not Resolved]
  - Meniscus injury [Not Recovered/Not Resolved]
  - Musculoskeletal pain [Unknown]
  - Skin discolouration [Recovered/Resolved]
  - Rash macular [Not Recovered/Not Resolved]
